FAERS Safety Report 6735686-X (Version None)
Quarter: 2010Q2

REPORT INFORMATION
  Report Type: 
  Country: None (occurrence: None)
  Receive Date: 20100521
  Receipt Date: 20100511
  Transmission Date: 20101027
  Serious: Yes (Hospitalization, Other)
  Sender: FDA-Public Use
  Company Number: CA-JNJFOC-20091006494

PATIENT
  Sex: Male
  Weight: 50 kg

DRUGS (9)
  1. REMICADE [Suspect]
     Indication: RHEUMATOID ARTHRITIS
     Route: 042
     Dates: start: 20000701, end: 20091001
  2. REMICADE [Suspect]
     Route: 042
     Dates: start: 20000701, end: 20091001
  3. AGGRENOX [Concomitant]
     Dosage: DOSE 200/25 MG
  4. FOSAMAX [Concomitant]
  5. FOLIC ACID [Concomitant]
  6. VITAMIN B-12 [Concomitant]
     Dosage: DOSE 1000 MCG/ML
  7. METHOTREXATE [Concomitant]
  8. PREVACID [Concomitant]
  9. ALL OTHER THERAPEUTIC PRODUCTS [Concomitant]

REACTIONS (1)
  - COLLAPSE OF LUNG [None]
